FAERS Safety Report 25738352 (Version 2)
Quarter: 2025Q3

REPORT INFORMATION
  Report Type: Spontaneous
  Country: RU (occurrence: RU)
  Receive Date: 20250829
  Receipt Date: 20250924
  Transmission Date: 20251020
  Serious: Yes (Other)
  Sender: MEDEXUS PHARMA
  Company Number: RU-MEDEXUS PHARMA, INC.-2025MED00266

PATIENT
  Age: 14 Year

DRUGS (3)
  1. METHOTREXATE [Suspect]
     Active Substance: METHOTREXATE
     Indication: Primary mediastinal large B-cell lymphoma
  2. METHOTREXATE [Suspect]
     Active Substance: METHOTREXATE
     Indication: Prophylaxis
     Route: 037
  3. RITUXIMAB [Concomitant]
     Active Substance: RITUXIMAB
     Indication: Primary mediastinal large B-cell lymphoma

REACTIONS (4)
  - Brain oedema [Recovered/Resolved]
  - Hypertension [Recovered/Resolved]
  - Tonic convulsion [Recovered/Resolved]
  - Neurotoxicity [Recovered/Resolved]
